FAERS Safety Report 17021359 (Version 3)
Quarter: 2019Q4

REPORT INFORMATION
  Report Type: Spontaneous
  Country: AU (occurrence: AU)
  Receive Date: 20191112
  Receipt Date: 20191212
  Transmission Date: 20200122
  Serious: Yes (Other)
  Sender: FDA-Public Use
  Company Number: AU-BAYER-2019-199082

PATIENT
  Age: 19 Year
  Sex: Female
  Weight: 120 kg

DRUGS (3)
  1. MIRENA [Suspect]
     Active Substance: LEVONORGESTREL
     Indication: MENORRHAGIA
     Dosage: 20 MCG/24HR, CONT
     Route: 015
     Dates: start: 20190628, end: 20190821
  2. MIRENA [Suspect]
     Active Substance: LEVONORGESTREL
     Indication: MENORRHAGIA
  3. MIRENA [Suspect]
     Active Substance: LEVONORGESTREL
     Indication: MENORRHAGIA
     Dosage: 20 MCG/24HR, CONT
     Route: 015
     Dates: start: 20191017

REACTIONS (10)
  - Abdominal pain lower [None]
  - Mood swings [None]
  - Medical device pain [None]
  - Weight increased [None]
  - Intentional self-injury [Not Recovered/Not Resolved]
  - Abdominal pain upper [None]
  - Intentional removal of drug delivery system by patient [None]
  - Procedural pain [None]
  - Post procedural haemorrhage [None]
  - Suicidal ideation [None]

NARRATIVE: CASE EVENT DATE: 2019
